FAERS Safety Report 13611337 (Version 2)
Quarter: 2017Q2

REPORT INFORMATION
  Report Type: Spontaneous
  Country: US (occurrence: US)
  Receive Date: 20170605
  Receipt Date: 20170615
  Transmission Date: 20170830
  Serious: Yes (Death, Other)
  Sender: FDA-Public Use
  Company Number: US-009507513-1706USA000646

PATIENT
  Age: 57 Year
  Sex: Male

DRUGS (6)
  1. DECADRON [Suspect]
     Active Substance: DEXAMETHASONE
     Indication: BURKITT^S LYMPHOMA
  2. CYTARABINE. [Suspect]
     Active Substance: CYTARABINE
     Indication: BURKITT^S LYMPHOMA
  3. VINCRISTINE [Suspect]
     Active Substance: VINCRISTINE
     Indication: BURKITT^S LYMPHOMA
  4. METHOTREXATE. [Suspect]
     Active Substance: METHOTREXATE
     Indication: BURKITT^S LYMPHOMA
  5. CYCLOPHOSPHAMIDE. [Suspect]
     Active Substance: CYCLOPHOSPHAMIDE
     Indication: BURKITT^S LYMPHOMA
  6. DOXORUBICIN [Suspect]
     Active Substance: DOXORUBICIN
     Indication: BURKITT^S LYMPHOMA

REACTIONS (3)
  - Death [Fatal]
  - Multiple organ dysfunction syndrome [Unknown]
  - Tumour lysis syndrome [Unknown]
